FAERS Safety Report 9173775 (Version 1)
Quarter: 2013Q1

REPORT INFORMATION
  Report Type: Spontaneous
  Country: US (occurrence: None)
  Receive Date: 20130318
  Receipt Date: 20130318
  Transmission Date: 20140127
  Serious: Yes (Other)
  Sender: FDA-Public Use
  Company Number: 2013-00070

PATIENT
  Age: 58 Year
  Sex: Female
  Weight: 58.97 kg

DRUGS (8)
  1. ZICAM EXTREME CONGESTION RELIEF [Suspect]
     Indication: SINUS CONGESTION
     Route: 045
     Dates: start: 201203
  2. COUMADIN [Concomitant]
  3. ASPIRIN [Concomitant]
  4. NEURONTIN [Concomitant]
  5. FLECAINIDE [Concomitant]
  6. PRILOSEC [Concomitant]
  7. DICYCLOMINE [Concomitant]
  8. TRICOR [Concomitant]

REACTIONS (1)
  - Drug dependence [None]
